FAERS Safety Report 10608314 (Version 1)
Quarter: 2014Q4

REPORT INFORMATION
  Report Type: Spontaneous
  Country: GB (occurrence: GB)
  Receive Date: 20141125
  Receipt Date: 20141125
  Transmission Date: 20150529
  Serious: Yes (Disabling)
  Sender: FDA-Public Use
  Company Number: PHHY2014GB151878

PATIENT
  Age: 74 Year
  Sex: Male
  Weight: 99.79 kg

DRUGS (11)
  1. ADALAT [Concomitant]
     Active Substance: NIFEDIPINE
     Dates: start: 20140806
  2. ALLEVYN AG [Concomitant]
     Dates: start: 20140820, end: 20140821
  3. ASPIRIN. [Concomitant]
     Active Substance: ASPIRIN
     Dates: start: 20140806
  4. ATORVASTATIN [Suspect]
     Active Substance: ATORVASTATIN
     Indication: CEREBROVASCULAR ACCIDENT
  5. ALLEVYN AG [Concomitant]
     Dates: start: 20141003, end: 20141004
  6. GLUCOPHAGE [Concomitant]
     Active Substance: METFORMIN HYDROCHLORIDE
     Dates: start: 20140806
  7. LEVOTHYROXINE [Concomitant]
     Active Substance: LEVOTHYROXINE
     Dates: start: 20140806
  8. SILDENAFIL. [Concomitant]
     Active Substance: SILDENAFIL
     Dates: start: 20140801, end: 20140829
  9. SIMVASTATIN. [Concomitant]
     Active Substance: SIMVASTATIN
     Dosage: 40 MG, UNK
     Dates: start: 20140806
  10. CANDESARTAN [Concomitant]
     Active Substance: CANDESARTAN
     Dates: start: 20140806
  11. GLICLAZIDE [Concomitant]
     Active Substance: GLICLAZIDE
     Dates: start: 20140806

REACTIONS (1)
  - Cough [Not Recovered/Not Resolved]

NARRATIVE: CASE EVENT DATE: 20141020
